FAERS Safety Report 17837878 (Version 1)
Quarter: 2020Q2

REPORT INFORMATION
  Report Type: Spontaneous
  Country: DE (occurrence: DE)
  Receive Date: 20200528
  Receipt Date: 20200528
  Transmission Date: 20200714
  Serious: Yes (Other)
  Sender: FDA-Public Use
  Company Number: DE-009507513-2005DEU006243

PATIENT
  Age: 16 Year
  Sex: Male

DRUGS (7)
  1. DECITABINE. [Concomitant]
     Active Substance: DECITABINE
     Dosage: FOUR 28-DAY CYCLES
     Route: 042
  2. SULFAMETHOXAZOLE (+) TRIMETHOPRIM [Concomitant]
     Active Substance: SULFAMETHOXAZOLE\TRIMETHOPRIM
     Indication: PROPHYLAXIS
     Dosage: UNK
  3. POSACONAZOLE [Suspect]
     Active Substance: POSACONAZOLE
     Indication: ANTIFUNGAL PROPHYLAXIS
     Dosage: UNK
  4. VENETOCLAX. [Suspect]
     Active Substance: VENETOCLAX
     Dosage: FROM DAY 1 OF CYCLE 1, ENDING ON DAY 28 OF CYCLE 3); DOSE RAMP-UP PERFORMED OVER FIVE WEEKS.
     Route: 048
  5. VENETOCLAX. [Suspect]
     Active Substance: VENETOCLAX
     Dosage: UNK
     Route: 048
  6. DECITABINE. [Concomitant]
     Active Substance: DECITABINE
     Dosage: UNK
  7. VALACYCLOVIR HYDROCHLORIDE. [Concomitant]
     Active Substance: VALACYCLOVIR HYDROCHLORIDE
     Indication: PROPHYLAXIS
     Dosage: UNK

REACTIONS (2)
  - Febrile neutropenia [Unknown]
  - Product administered to patient of inappropriate age [Unknown]
